FAERS Safety Report 6238142-0 (Version None)
Quarter: 2009Q2

REPORT INFORMATION
  Report Type: 
  Country: None (occurrence: None)
  Receive Date: 20090617
  Receipt Date: 20090617
  Transmission Date: 20091009
  Serious: Yes (Hospitalization)
  Sender: FDA-Public Use
  Company Number: None

PATIENT
  Sex: Female
  Weight: 94.9 kg

DRUGS (5)
  1. BEVACIZUMAB 15 MG/KG GENENTECH [Suspect]
     Indication: HEAD AND NECK CANCER
     Dosage: 15 MG/KG Q 3 WEEKS IV
     Route: 042
     Dates: start: 20090114, end: 20090527
  2. PEMETREXED 500 MG/M2 ELI LILLY [Suspect]
     Indication: HEAD AND NECK CANCER
     Dosage: 500 MG/M2 Q 3 WEEKS IV
     Route: 042
     Dates: start: 20090114, end: 20090527
  3. ATENOLOL [Concomitant]
  4. FOLIC ACID [Concomitant]
  5. VIT B12 [Concomitant]

REACTIONS (4)
  - CONVULSION [None]
  - FALL [None]
  - STARING [None]
  - UNRESPONSIVE TO STIMULI [None]
